FAERS Safety Report 9603476 (Version 1)
Quarter: 2013Q4

REPORT INFORMATION
  Report Type: Spontaneous
  Country: US (occurrence: US)
  Receive Date: 20131007
  Receipt Date: 20131007
  Transmission Date: 20140711
  Serious: No
  Sender: FDA-Public Use
  Company Number: US-009507513-1310USA003112

PATIENT
  Age: 4 Year
  Sex: Male
  Weight: 24.94 kg

DRUGS (1)
  1. DR. SCHOLLS CLEAR AWAY WART REMOVER [Suspect]
     Indication: SKIN PAPILLOMA
     Dosage: UNK, QD
     Route: 061
     Dates: start: 201309

REACTIONS (4)
  - Application site ulcer [Not Recovered/Not Resolved]
  - Application site pain [Not Recovered/Not Resolved]
  - Expired drug administered [Unknown]
  - Drug ineffective [Unknown]
